FAERS Safety Report 9422543 (Version 2)
Quarter: 2013Q4

REPORT INFORMATION
  Report Type: Spontaneous
  Country: US (occurrence: US)
  Receive Date: 20130726
  Receipt Date: 20131010
  Transmission Date: 20140711
  Serious: Yes (Disabling)
  Sender: FDA-Public Use
  Company Number: US-PFIZER INC-2013217764

PATIENT
  Sex: Male

DRUGS (2)
  1. LYRICA [Suspect]
     Indication: FIBROMYALGIA
     Dosage: 100 MG, 2X/DAY
     Route: 048
     Dates: start: 2008
  2. LYRICA [Suspect]
     Dosage: 150 MG, 2X/DAY
     Route: 048

REACTIONS (6)
  - Nerve injury [Unknown]
  - Pain [Unknown]
  - Fibromyalgia [Unknown]
  - Carpal tunnel syndrome [Unknown]
  - Back disorder [Unknown]
  - Musculoskeletal discomfort [Unknown]
